FAERS Safety Report 5716298-3 (Version None)
Quarter: 2008Q2

REPORT INFORMATION
  Report Type: 
  Country: None (occurrence: None)
  Receive Date: 20080424
  Receipt Date: 20080418
  Transmission Date: 20081010
  Serious: Yes (Other)
  Sender: FDA-Public Use
  Company Number: B0518064A

PATIENT
  Age: 70 Year
  Sex: Female

DRUGS (1)
  1. SERETIDE [Suspect]
     Indication: COUGH
     Route: 055
     Dates: start: 20080401, end: 20080401

REACTIONS (1)
  - EXTRAPYRAMIDAL DISORDER [None]
